FAERS Safety Report 5208928-X (Version None)
Quarter: 2007Q1

REPORT INFORMATION
  Report Type: 
  Country: None (occurrence: None)
  Receive Date: 20070111
  Receipt Date: 20070111
  Transmission Date: 20070707
  Serious: Yes (Other)
  Sender: FDA-Public Use
  Company Number: None

PATIENT
  Age: 48 Year
  Sex: Female
  Weight: 117 kg

DRUGS (1)
  1. CEPHALEXIN [Suspect]
     Indication: LESION EXCISION
     Dosage: 2G,500MGQID, ORAL
     Route: 048
     Dates: start: 20061205, end: 20061215

REACTIONS (4)
  - EYE SWELLING [None]
  - HYPOAESTHESIA [None]
  - PRURITUS [None]
  - RASH [None]
